FAERS Safety Report 13582724 (Version 7)
Quarter: 2019Q2

REPORT INFORMATION
  Report Type: Spontaneous
  Country: IN (occurrence: IN)
  Receive Date: 20170525
  Receipt Date: 20190507
  Transmission Date: 20190711
  Serious: Yes (Death)
  Sender: FDA-Public Use
  Company Number: IN-PFIZER INC-2017149928

PATIENT
  Age: 42 Year
  Sex: Female
  Weight: 84.5 kg

DRUGS (9)
  1. PALBACE [Suspect]
     Active Substance: PALBOCICLIB
     Dosage: 125 MG, CYCLIC (1.00 TAB)X 21 DAYS (ONCE A DAY, 3 WEEKS ON AND 1 WEEK OFF)
     Route: 048
     Dates: start: 20171108
  2. PAN [Concomitant]
     Dosage: 40 MG, 1X/DAY (1.00 TAB) X 15 DAYS
     Dates: start: 20171108
  3. MUCAINE [Concomitant]
     Active Substance: ALUMINUM HYDROXIDE\DIMETHICONE\MAGNESIUM HYDROXIDE
     Dosage: UNK UNK, 3X/DAY (10.00 ML) X 20 DAYS
     Dates: start: 20171108
  4. LETROZOLE. [Concomitant]
     Active Substance: LETROZOLE
     Dosage: 2.5 MG, DAILY
     Dates: start: 201701
  5. CREMAFFIN [Concomitant]
     Indication: CONSTIPATION
     Dosage: UNK (10.00 ML) X 1 DAY
     Dates: start: 20171108
  6. CCM [Concomitant]
     Dosage: 1 DF, 1X/DAY (1.00 TABLET) X 90 DAYS
     Dates: start: 20171108
  7. PALBACE [Suspect]
     Active Substance: PALBOCICLIB
     Indication: BREAST CANCER METASTATIC
     Dosage: 125 MG, CYCLIC (TO BE TAKEN DAILY FOR 3 WEEKS F/B ONE WEEK REST)
     Route: 048
     Dates: start: 20170201
  8. PYRIGESIC [Concomitant]
     Indication: PAIN
     Dosage: 1000 MG, 1X/DAY (1.00 TABLET) X 1 DAY
     Dates: start: 20171108
  9. FEMPRO [Concomitant]
     Dosage: 2.5 MG, 1X/DAY (1.00 TABLET) X 90 DAYS
     Dates: start: 20171108

REACTIONS (8)
  - Cough [Unknown]
  - Back pain [Unknown]
  - Neoplasm progression [Unknown]
  - Neutrophil count decreased [Recovered/Resolved]
  - Breath sounds abnormal [Unknown]
  - Death [Fatal]
  - Red blood cell count decreased [Recovered/Resolved]
  - White blood cell count decreased [Recovered/Resolved]

NARRATIVE: CASE EVENT DATE: 20171101
